FAERS Safety Report 15319486 (Version 1)
Quarter: 2018Q3

REPORT INFORMATION
  Report Type: Spontaneous
  Country: US (occurrence: US)
  Receive Date: 20180827
  Receipt Date: 20180827
  Transmission Date: 20181010
  Serious: Yes (Death, Hospitalization, Other)
  Sender: FDA-Public Use
  Company Number: US-B.I. PHARMACEUTICALS,INC./RIDGEFIELD-2018-BI-042187

PATIENT
  Age: 76 Year
  Sex: Male

DRUGS (2)
  1. PRADAXA [Suspect]
     Active Substance: DABIGATRAN ETEXILATE MESYLATE
     Indication: ATRIAL FIBRILLATION
     Dosage: FORM STRENGTH: 150 MG; FORMULATION: CAPSULE? ACTION(S) TAKEN WITH PRODUCT: DRUG WITHDRAWN
     Route: 048
     Dates: start: 201711, end: 201802
  2. HEPARIN [Concomitant]
     Active Substance: HEPARIN SODIUM
     Indication: PRODUCT USED FOR UNKNOWN INDICATION
     Dosage: DRIP
     Route: 042
     Dates: start: 20180815

REACTIONS (9)
  - Cardiac failure congestive [Unknown]
  - Encephalopathy [Unknown]
  - Dysuria [Unknown]
  - Haemorrhoidal haemorrhage [Unknown]
  - Sepsis [Recovered/Resolved]
  - Sepsis [Fatal]
  - Cardiac failure congestive [Recovered/Resolved]
  - Asthenia [Unknown]
  - Device occlusion [Unknown]

NARRATIVE: CASE EVENT DATE: 201802
